FAERS Safety Report 4950695-9 (Version None)
Quarter: 2006Q1

REPORT INFORMATION
  Report Type: 
  Country: None (occurrence: None)
  Receive Date: 20060321
  Receipt Date: 20060321
  Transmission Date: 20060701
  Serious: Yes (Death)
  Sender: FDA-Public Use
  Company Number: None

PATIENT
  Age: 85 Year
  Sex: Male
  Weight: 75.9 kg

DRUGS (16)
  1. LOVENOX [Suspect]
     Indication: ANTICOAGULANT THERAPY
     Dosage: 40 MG Q12H  SQ
     Route: 058
     Dates: start: 20060106, end: 20060110
  2. ARGATROBAN [Suspect]
     Indication: ANTICOAGULANT THERAPY
     Dosage: CONTINUOUS INFUSION     IV
     Route: 042
     Dates: start: 20060110, end: 20060111
  3. EPOETIN [Concomitant]
  4. CEFEPIME [Concomitant]
  5. FLUCONAZOLE [Concomitant]
  6. ZOSYN [Concomitant]
  7. ALBUTEROL/ ATROVENT [Concomitant]
  8. PHENYLEPHRINE/NOREPINEPHRINE [Concomitant]
  9. ALBUMIN (HUMAN) [Concomitant]
  10. VERSED [Concomitant]
  11. MORPHINE [Concomitant]
  12. CALCIUM GLUCONATE [Concomitant]
  13. PROTONIX [Concomitant]
  14. VASOPRESSIN [Concomitant]
  15. SOLU-MEDROL [Concomitant]
  16. PREDNISONE [Concomitant]

REACTIONS (2)
  - DUODENAL ULCER HAEMORRHAGE [None]
  - HEPARIN-INDUCED THROMBOCYTOPENIA [None]
